FAERS Safety Report 7238108-8 (Version None)
Quarter: 2011Q1

REPORT INFORMATION
  Report Type: 
  Country: None (occurrence: None)
  Receive Date: 20110121
  Receipt Date: 20110111
  Transmission Date: 20110831
  Serious: Yes (Other)
  Sender: FDA-Public Use
  Company Number: FR-JNJFOC-20110102790

PATIENT
  Age: 43 Year
  Sex: Male

DRUGS (4)
  1. REMICADE [Suspect]
     Route: 042
  2. REMICADE [Suspect]
     Indication: CROHN'S DISEASE
     Route: 042
  3. METHOTREXATE [Concomitant]
  4. REMICADE [Suspect]
     Dosage: 20TH INFUSION
     Route: 042

REACTIONS (9)
  - VIRAL TRACHEITIS [None]
  - PARAESTHESIA [None]
  - INFUSION RELATED REACTION [None]
  - HYPERTENSION [None]
  - VOMITING [None]
  - NAUSEA [None]
  - HYPERSENSITIVITY [None]
  - TACHYCARDIA [None]
  - ERYTHEMA [None]
